FAERS Safety Report 18303901 (Version 1)
Quarter: 2020Q3

REPORT INFORMATION
  Report Type: Report from Study
  Country: US (occurrence: US)
  Receive Date: 20200923
  Receipt Date: 20200923
  Transmission Date: 20201103
  Serious: Yes (Hospitalization)
  Sender: FDA-Public Use
  Company Number: US-JNJFOC-A-NJ2019-196778

PATIENT
  Age: 67 Year
  Sex: Female
  Weight: 93.42 kg

DRUGS (3)
  1. OPSUMIT [Suspect]
     Active Substance: MACITENTAN
     Indication: PULMONARY ARTERIAL HYPERTENSION
     Dosage: 10 MG, QD
     Route: 048
  2. REMODULIN [Concomitant]
     Active Substance: TREPROSTINIL
  3. OPSUMIT [Suspect]
     Active Substance: MACITENTAN
     Route: 048

REACTIONS (8)
  - Intestinal obstruction [Recovered/Resolved]
  - Fluid retention [Unknown]
  - Abdominal operation [Unknown]
  - Abdominal discomfort [Unknown]
  - Oedema peripheral [Not Recovered/Not Resolved]
  - Rales [Unknown]
  - Anxiety [Recovering/Resolving]
  - Fatigue [Recovering/Resolving]

NARRATIVE: CASE EVENT DATE: 20191128
